FAERS Safety Report 14136899 (Version 2)
Quarter: 2018Q1

REPORT INFORMATION
  Report Type: Spontaneous
  Country: US (occurrence: US)
  Receive Date: 20171027
  Receipt Date: 20180112
  Transmission Date: 20180508
  Serious: Yes (Other)
  Sender: FDA-Public Use
  Company Number: US-GLAXOSMITHKLINE-US2017164689

PATIENT
  Age: 58 Year
  Sex: Male

DRUGS (2)
  1. TUMS ULTRA [Suspect]
     Active Substance: CALCIUM CARBONATE
     Dosage: 3 DF, UNK
  2. TUMS ULTRA [Suspect]
     Active Substance: CALCIUM CARBONATE
     Indication: DYSPEPSIA
     Dosage: 3 DF, UNK

REACTIONS (6)
  - Emergency care examination [Unknown]
  - Swelling face [Unknown]
  - Throat tightness [Unknown]
  - Drug hypersensitivity [Unknown]
  - Pruritus [Unknown]
  - Anaphylactic shock [Recovered/Resolved]
